FAERS Safety Report 6901646-9 (Version None)
Quarter: 2010Q3

REPORT INFORMATION
  Report Type: 
  Country: None (occurrence: None)
  Receive Date: 20100803
  Receipt Date: 20080229
  Transmission Date: 20110219
  Serious: No
  Sender: FDA-Public Use
  Company Number: US-PFIZER INC-2008020017

PATIENT
  Sex: Female

DRUGS (5)
  1. LYRICA [Suspect]
     Indication: FIBROMYALGIA
     Route: 048
     Dates: start: 20080226
  2. ESTRACE [Concomitant]
  3. DYAZIDE [Concomitant]
  4. COZAAR [Concomitant]
  5. MONTELUKAST SODIUM [Concomitant]

REACTIONS (2)
  - DIZZINESS [None]
  - EUPHORIC MOOD [None]
